FAERS Safety Report 24792173 (Version 8)
Quarter: 2025Q3

REPORT INFORMATION
  Report Type: Report from Study
  Country: CA (occurrence: CA)
  Receive Date: 20241231
  Receipt Date: 20250906
  Transmission Date: 20251020
  Serious: Yes (Life-Threatening, Other)
  Sender: TAKEDA
  Company Number: CA-TAKEDA-2024TUS130472

PATIENT
  Sex: Female

DRUGS (3)
  1. VEDOLIZUMAB [Suspect]
     Active Substance: VEDOLIZUMAB
     Indication: Crohn^s disease
  2. VEDOLIZUMAB [Suspect]
     Active Substance: VEDOLIZUMAB
  3. ESOMEPRAZOLE [Concomitant]
     Active Substance: ESOMEPRAZOLE

REACTIONS (5)
  - Bile duct cancer recurrent [Not Recovered/Not Resolved]
  - Lymphocyte count decreased [Unknown]
  - White blood cell count decreased [Unknown]
  - Neutrophil count decreased [Unknown]
  - Haemoglobin decreased [Recovered/Resolved]
